FAERS Safety Report 16897015 (Version 3)
Quarter: 2020Q1

REPORT INFORMATION
  Report Type: Report from Study
  Country: IT (occurrence: IT)
  Receive Date: 20191009
  Receipt Date: 20200304
  Transmission Date: 20200409
  Serious: Yes (Hospitalization)
  Sender: FDA-Public Use
  Company Number: IT-ROCHE-2429873

PATIENT
  Age: 66 Year
  Sex: Male

DRUGS (56)
  1. CLORFENAMINA [CHLORPHENAMINE] [Concomitant]
     Active Substance: CHLORPHENIRAMINE
     Route: 065
     Dates: start: 20160824, end: 20160824
  2. BISOPROLOLO [Concomitant]
     Active Substance: BISOPROLOL FUMARATE
     Route: 065
     Dates: start: 20161019
  3. METILPREDNISOLONE [Concomitant]
     Active Substance: METHYLPREDNISOLONE
     Route: 065
     Dates: start: 20161020, end: 20161020
  4. METILPREDNISOLONE [Concomitant]
     Active Substance: METHYLPREDNISOLONE
     Route: 065
     Dates: start: 20170111, end: 20170111
  5. OVIXAN [Concomitant]
     Route: 065
     Dates: start: 20180530, end: 20190620
  6. ACALABRUTINIB. [Suspect]
     Active Substance: ACALABRUTINIB
     Indication: CHRONIC LYMPHOCYTIC LEUKAEMIA
     Route: 048
     Dates: start: 20160727
  7. CLORFENAMINA [CHLORPHENAMINE] [Concomitant]
     Active Substance: CHLORPHENIRAMINE
     Route: 065
     Dates: start: 20161020, end: 20161020
  8. EMPAGLIFLOZIN [Concomitant]
     Active Substance: EMPAGLIFLOZIN
     Indication: DIABETES MELLITUS
     Route: 065
     Dates: start: 20190111
  9. PARACETAMOL [Concomitant]
     Active Substance: ACETAMINOPHEN
     Route: 065
     Dates: start: 20160831, end: 20160831
  10. PARACETAMOL [Concomitant]
     Active Substance: ACETAMINOPHEN
     Dosage: AS NEEDED
     Route: 065
     Dates: start: 20190928
  11. PARACETAMOL [Concomitant]
     Active Substance: ACETAMINOPHEN
     Route: 065
     Dates: start: 20161116, end: 20161116
  12. SOTALOLO [Concomitant]
     Route: 065
     Dates: start: 2011, end: 20160922
  13. ALLOPURINOLO [Concomitant]
     Active Substance: ALLOPURINOL
     Route: 065
     Dates: start: 2020
  14. METILPREDNISOLONE [Concomitant]
     Active Substance: METHYLPREDNISOLONE
     Route: 065
     Dates: start: 20160825, end: 20160825
  15. PARACETAMOL [Concomitant]
     Active Substance: ACETAMINOPHEN
     Route: 065
     Dates: start: 20161214, end: 20161214
  16. PARACETAMOL [Concomitant]
     Active Substance: ACETAMINOPHEN
     Route: 065
     Dates: start: 20160824, end: 20160824
  17. OVIXAN [Concomitant]
     Route: 065
     Dates: start: 20190620
  18. CALCIUM CARBONATE. [Concomitant]
     Active Substance: CALCIUM CARBONATE
     Indication: HYPOCALCAEMIA
     Route: 065
     Dates: start: 20190928
  19. ALLOPURINOLO [Concomitant]
     Active Substance: ALLOPURINOL
     Route: 065
     Dates: start: 20181115
  20. CLORFENAMINA [CHLORPHENAMINE] [Concomitant]
     Active Substance: CHLORPHENIRAMINE
     Route: 065
     Dates: start: 20160825, end: 20160825
  21. AMOXICILLIN;CLAVULANIC ACID [Concomitant]
     Active Substance: AMOXICILLIN\CLAVULANIC ACID
     Indication: BRONCHITIS
     Route: 065
     Dates: start: 20170908, end: 20170913
  22. PARACETAMOL [Concomitant]
     Active Substance: ACETAMINOPHEN
     Indication: PREMEDICATION
     Route: 065
     Dates: start: 20160825, end: 20160825
  23. PARACETAMOL [Concomitant]
     Active Substance: ACETAMINOPHEN
     Route: 065
     Dates: start: 20161020, end: 20161020
  24. KETOROLAC [Concomitant]
     Active Substance: KETOROLAC TROMETHAMINE
     Route: 065
     Dates: start: 20160824, end: 20160824
  25. AMOXICILLIN;CLAVULANIC ACID [Concomitant]
     Active Substance: AMOXICILLIN\CLAVULANIC ACID
     Route: 065
     Dates: start: 20190114, end: 20190121
  26. METILPREDNISOLONE [Concomitant]
     Active Substance: METHYLPREDNISOLONE
     Indication: PREMEDICATION
     Route: 065
     Dates: start: 20160907, end: 20160907
  27. METILPREDNISOLONE [Concomitant]
     Active Substance: METHYLPREDNISOLONE
     Route: 065
     Dates: start: 20161214, end: 20161214
  28. METILPREDNISOLONE [Concomitant]
     Active Substance: METHYLPREDNISOLONE
     Route: 065
     Dates: start: 20160831, end: 20160831
  29. NADIFLOXACIN [Concomitant]
     Active Substance: NADIFLOXACIN
     Route: 065
     Dates: start: 20190218
  30. PARACETAMOL [Concomitant]
     Active Substance: ACETAMINOPHEN
     Route: 065
     Dates: start: 20160921, end: 20160921
  31. CLORFENAMINA [CHLORPHENAMINE] [Concomitant]
     Active Substance: CHLORPHENIRAMINE
     Indication: PREMEDICATION
     Route: 065
     Dates: start: 20160825, end: 20160825
  32. CALCITRIOL. [Concomitant]
     Active Substance: CALCITRIOL
     Indication: HYPOCALCAEMIA
     Route: 065
     Dates: start: 20190928
  33. ATORVASTATIN [Concomitant]
     Active Substance: ATORVASTATIN
     Indication: DYSLIPIDAEMIA
     Route: 065
     Dates: start: 1990
  34. GENTAMICINA [GENTAMICIN] [Concomitant]
     Route: 065
     Dates: start: 20170908, end: 20170911
  35. CLORFENAMINA [CHLORPHENAMINE] [Concomitant]
     Active Substance: CHLORPHENIRAMINE
     Route: 065
     Dates: start: 20161214, end: 20161214
  36. METILPREDNISOLONE [Concomitant]
     Active Substance: METHYLPREDNISOLONE
     Route: 065
     Dates: start: 20160824, end: 20160824
  37. NADIFLOXACIN [Concomitant]
     Active Substance: NADIFLOXACIN
     Indication: NASAL CYST
     Route: 065
     Dates: start: 20181127, end: 20181210
  38. ISONIAZIDE [Concomitant]
     Active Substance: ISONIAZID
     Indication: HYPERTENSION
     Route: 065
     Dates: start: 20160825
  39. IVERMECTINE [Concomitant]
     Route: 065
     Dates: start: 201909
  40. FUROSEMIDE. [Concomitant]
     Active Substance: FUROSEMIDE
     Indication: OEDEMA PERIPHERAL
     Route: 065
     Dates: start: 201709
  41. ALLOPURINOLO [Concomitant]
     Active Substance: ALLOPURINOL
     Indication: HYPERURICAEMIA
     Route: 065
     Dates: start: 20160727, end: 20180214
  42. CLORFENAMINA [CHLORPHENAMINE] [Concomitant]
     Active Substance: CHLORPHENIRAMINE
     Route: 065
     Dates: start: 20160907, end: 20160907
  43. CLORFENAMINA [CHLORPHENAMINE] [Concomitant]
     Active Substance: CHLORPHENIRAMINE
     Route: 065
     Dates: start: 20170111, end: 20170111
  44. CLORFENAMINA [CHLORPHENAMINE] [Concomitant]
     Active Substance: CHLORPHENIRAMINE
     Route: 065
     Dates: start: 20160921, end: 20160921
  45. CLORFENAMINA [CHLORPHENAMINE] [Concomitant]
     Active Substance: CHLORPHENIRAMINE
     Route: 065
     Dates: start: 20161116, end: 20161116
  46. METILPREDNISOLONE [Concomitant]
     Active Substance: METHYLPREDNISOLONE
     Route: 065
     Dates: start: 20161116, end: 20161116
  47. PARACETAMOL [Concomitant]
     Active Substance: ACETAMINOPHEN
     Route: 065
     Dates: start: 20170111, end: 20170111
  48. METFORMINA CLORHIDRATO [Concomitant]
     Indication: DIABETES MELLITUS
     Route: 065
     Dates: start: 20190101
  49. METFORMINA [METFORMIN] [Concomitant]
     Active Substance: METFORMIN HYDROCHLORIDE
     Indication: DIABETES MELLITUS
     Route: 065
     Dates: start: 2003, end: 20190110
  50. OBINUTUZUMAB. [Suspect]
     Active Substance: OBINUTUZUMAB
     Indication: CHRONIC LYMPHOCYTIC LEUKAEMIA
     Dosage: OVER A TOTAL OF 6 TREATMENT CYCLES?INFUSION START WAS 11:30 AND STOP TIME WAS 15:55.
     Route: 042
     Dates: start: 20160824, end: 20160824
  51. OBINUTUZUMAB. [Suspect]
     Active Substance: OBINUTUZUMAB
     Dosage: INFUSION START WAS 12:00 AND STOP TIME WAS 15:30.
     Route: 042
     Dates: start: 20170111, end: 20170111
  52. CLORFENAMINA [CHLORPHENAMINE] [Concomitant]
     Active Substance: CHLORPHENIRAMINE
     Indication: PREMEDICATION
     Dosage: ONE TIME ONLY
     Route: 065
     Dates: start: 20160831, end: 20160831
  53. TITANIUM DIOXIDE. [Concomitant]
     Active Substance: TITANIUM DIOXIDE
     Dosage: AS NEEDED
     Route: 065
     Dates: start: 20180530
  54. METILPREDNISOLONE [Concomitant]
     Active Substance: METHYLPREDNISOLONE
     Route: 065
     Dates: start: 20160921, end: 20160921
  55. PARACETAMOL [Concomitant]
     Active Substance: ACETAMINOPHEN
     Indication: PAIN
     Route: 065
     Dates: start: 20160907, end: 20160907
  56. ACETYLSALICYLIC ACID [Concomitant]
     Active Substance: ASPIRIN
     Indication: ACUTE MYOCARDIAL INFARCTION
     Route: 065
     Dates: start: 2003

REACTIONS (1)
  - Thyroid cancer [Recovered/Resolved]

NARRATIVE: CASE EVENT DATE: 20190924
